FAERS Safety Report 9139537 (Version 1)
Quarter: 2013Q1

REPORT INFORMATION
  Report Type: Report from Study
  Country: DE (occurrence: DE)
  Receive Date: 20130305
  Receipt Date: 20130305
  Transmission Date: 20140127
  Serious: Yes (Hospitalization)
  Sender: FDA-Public Use
  Company Number: DE-ABBOTT-12P-062-1010729-00

PATIENT
  Age: 57 Year
  Sex: Female
  Weight: 57 kg

DRUGS (8)
  1. HUMIRA [Suspect]
     Indication: RHEUMATOID ARTHRITIS
     Route: 058
     Dates: start: 20120606, end: 20120926
  2. HUMIRA [Suspect]
     Route: 058
     Dates: start: 201210
  3. LOSARTAN [Concomitant]
     Indication: HYPERTENSION
     Dosage: 100MG DAILY
  4. AMLODIPIN [Concomitant]
     Indication: HYPERTENSION
     Dosage: 10MG DAILY
  5. ALENDRONIC ACID [Concomitant]
     Indication: OSTEOPOROSIS
  6. GLUCOCORTICOIDS [Concomitant]
     Indication: PRODUCT USED FOR UNKNOWN INDICATION
     Dosage: 15MG DAILY
     Dates: end: 20121031
  7. GLUCOCORTICOIDS [Concomitant]
     Dates: start: 20121101
  8. PREDNISOLONE [Concomitant]
     Dates: start: 201205

REACTIONS (5)
  - Pain [Unknown]
  - Infection [Recovered/Resolved]
  - Thrombophlebitis [Recovered/Resolved]
  - Purulent discharge [Recovered/Resolved]
  - Infection [Recovered/Resolved]
